FAERS Safety Report 6218630-3 (Version None)
Quarter: 2009Q2

REPORT INFORMATION
  Report Type: 
  Country: None (occurrence: None)
  Receive Date: 20090608
  Receipt Date: 20090601
  Transmission Date: 20091009
  Serious: Yes (Other)
  Sender: FDA-Public Use
  Company Number: JP-MERCK-0905USA03958

PATIENT
  Age: 65 Year
  Sex: Male
  Weight: 84 kg

DRUGS (5)
  1. HYZAAR [Suspect]
     Indication: HYPERTENSION
     Route: 048
     Dates: start: 20090407, end: 20090518
  2. ASPIRIN [Concomitant]
     Indication: ANGINA PECTORIS
     Route: 048
     Dates: start: 20080425
  3. ZYLORIC [Concomitant]
     Indication: HYPERURICAEMIA
     Route: 048
     Dates: start: 20080425
  4. CONIEL [Concomitant]
     Indication: HYPERTENSION
     Route: 048
     Dates: start: 20080425
  5. INDERAL [Concomitant]
     Indication: SUPRAVENTRICULAR TACHYCARDIA
     Route: 048
     Dates: start: 20080425

REACTIONS (1)
  - BLOOD CREATINE PHOSPHOKINASE INCREASED [None]
